FAERS Safety Report 5936584-1 (Version None)
Quarter: 2008Q4

REPORT INFORMATION
  Report Type: 
  Country: None (occurrence: None)
  Receive Date: 20081030
  Receipt Date: 20081017
  Transmission Date: 20090506
  Serious: Yes (Other)
  Sender: FDA-Public Use
  Company Number: GB-BAUSCH-2008BL004476

PATIENT
  Age: 28 Year
  Sex: Female

DRUGS (11)
  1. PREDNISOLONE [Suspect]
     Indication: CONJUNCTIVOPLASTY
     Dates: start: 20040501
  2. PREDNISOLONE [Suspect]
     Indication: CORNEAL TRANSPLANT
     Dates: start: 20040501
  3. PREDNISOLONE [Suspect]
     Dates: start: 20050801
  4. PREDNISOLONE [Suspect]
     Dates: start: 20050801
  5. CYCLOSPORINE [Suspect]
     Indication: CONJUNCTIVITIS
     Dates: start: 20050801, end: 20060201
  6. CYCLOSPORINE [Suspect]
     Indication: CONJUNCTIVOPLASTY
     Dates: start: 20050801, end: 20060201
  7. CYCLOSPORINE [Suspect]
     Dates: start: 20050801, end: 20060201
  8. MYCOPHENOLATE SODIUM [Suspect]
     Indication: CONJUNCTIVITIS
     Dates: start: 20040601, end: 20060501
  9. MYCOPHENOLATE SODIUM [Suspect]
     Indication: CONJUNCTIVOPLASTY
     Dates: start: 20040601, end: 20060501
  10. MYCOPHENOLATE SODIUM [Suspect]
     Dates: start: 20040601, end: 20060501
  11. AZATHIOPRINE [Concomitant]
     Indication: CONJUNCTIVOPLASTY
     Dates: start: 20040501

REACTIONS (6)
  - BETA HAEMOLYTIC STREPTOCOCCAL INFECTION [None]
  - CANDIDIASIS [None]
  - CHOROIDAL HAEMORRHAGE [None]
  - DRUG INEFFECTIVE [None]
  - EYE INFECTION STAPHYLOCOCCAL [None]
  - KERATITIS BACTERIAL [None]
